FAERS Safety Report 9329581 (Version 1)
Quarter: 2013Q2

REPORT INFORMATION
  Report Type: Spontaneous
  Country: US (occurrence: US)
  Receive Date: 20130604
  Receipt Date: 20130604
  Transmission Date: 20140414
  Serious: No
  Sender: FDA-Public Use
  Company Number: US-SANOFI-AVENTIS-2013SA030699

PATIENT
  Age: 63 Year
  Sex: Female

DRUGS (2)
  1. LANTUS SOLOSTAR [Suspect]
     Indication: TYPE 2 DIABETES MELLITUS
     Dosage: THERAPY STARTED SINCE ONE YEAR.PATIENT TAKES 30 UNITS AT MORNING AND 44 UNITS AT NIGHT
     Route: 051
  2. SOLOSTAR [Suspect]

REACTIONS (2)
  - Herpes zoster [Unknown]
  - Abasia [Unknown]
